FAERS Safety Report 8134484-2 (Version None)
Quarter: 2012Q1

REPORT INFORMATION
  Report Type: 
  Country: None (occurrence: None)
  Receive Date: 20120103
  Receipt Date: 20111108
  Transmission Date: 20120608
  Serious: No
  Sender: FDA-Public Use
  Company Number: AE-2011-003204

PATIENT
  Sex: Female
  Weight: 63.5036 kg

DRUGS (4)
  1. PEGASYS [Concomitant]
  2. AMBIEN [Concomitant]
  3. RIBAVIRIN [Concomitant]
  4. INCIVEK [Suspect]
     Dosage: 2250 MG (750 MG, 1 IN 8 HR), ORAL
     Route: 048
     Dates: start: 20111105

REACTIONS (4)
  - FATIGUE [None]
  - PYREXIA [None]
  - SOMNOLENCE [None]
  - HAEMORRHOIDS [None]
